FAERS Safety Report 9403317 (Version 1)
Quarter: 2013Q3

REPORT INFORMATION
  Report Type: Spontaneous
  Country: IN (occurrence: IN)
  Receive Date: 20130716
  Receipt Date: 20130716
  Transmission Date: 20140515
  Serious: Yes (Other)
  Sender: FDA-Public Use
  Company Number: ALCN2013IN000558

PATIENT
  Age: 57 Year
  Sex: Female

DRUGS (3)
  1. BSS [Suspect]
     Indication: INTRAOCULAR LENS IMPLANT
     Dosage: UNK
     Route: 031
     Dates: start: 20130607, end: 20130607
  2. VIGAMOX [Suspect]
     Indication: INTRAOCULAR LENS IMPLANT
     Dosage: UNK
     Route: 047
     Dates: start: 20130607, end: 20130607
  3. BETADINE [Suspect]
     Indication: INTRAOCULAR LENS IMPLANT
     Dosage: UNK
     Route: 047
     Dates: start: 20130607, end: 20130607

REACTIONS (1)
  - Toxic anterior segment syndrome [Recovered/Resolved]
